FAERS Safety Report 10082775 (Version 2)
Quarter: 2014Q2

REPORT INFORMATION
  Report Type: Spontaneous
  Country: US (occurrence: US)
  Receive Date: 20140416
  Receipt Date: 20140416
  Transmission Date: 20141212
  Serious: No
  Sender: FDA-Public Use
  Company Number: US-ALLERGAN-1306833US

PATIENT
  Age: 68 Year
  Sex: Male

DRUGS (4)
  1. ZYMAXID [Suspect]
     Indication: CONJUNCTIVITIS
     Dosage: 2 GTT, QID
     Route: 047
     Dates: end: 20130424
  2. ZYMAXID [Suspect]
     Dosage: 2 GTT, QID
     Dates: end: 20130424
  3. COMBIGAN[R] [Concomitant]
     Indication: INTRAOCULAR PRESSURE INCREASED
     Dosage: 2 GTT, BID
     Route: 047
  4. MINOXIDIL [Concomitant]
     Indication: ALOPECIA
     Dosage: UNK
     Route: 061

REACTIONS (1)
  - Intraocular pressure increased [Recovering/Resolving]
